FAERS Safety Report 24062341 (Version 1)
Quarter: 2024Q3

REPORT INFORMATION
  Report Type: Spontaneous
  Country: IL (occurrence: IL)
  Receive Date: 20240708
  Receipt Date: 20240708
  Transmission Date: 20241016
  Serious: Yes (Life-Threatening)
  Sender: AMERICAN REGENT
  Company Number: IL-AMERICAN REGENT INC-2024002541

PATIENT
  Age: 72 Year
  Sex: Female

DRUGS (1)
  1. FERINJECT [Suspect]
     Active Substance: FERRIC CARBOXYMALTOSE
     Indication: Product used for unknown indication
     Dosage: 500 MILLIGRAM
     Route: 042
     Dates: start: 20240619, end: 20240619

REACTIONS (7)
  - Suffocation feeling [Unknown]
  - Speech disorder [Unknown]
  - Oropharyngeal pain [Unknown]
  - Asthenia [Unknown]
  - Blood pressure decreased [Unknown]
  - Tachycardia [Unknown]
  - Dizziness [Unknown]

NARRATIVE: CASE EVENT DATE: 20240601
